FAERS Safety Report 7004711-3 (Version None)
Quarter: 2010Q3

REPORT INFORMATION
  Report Type: 
  Country: None (occurrence: None)
  Receive Date: 20100921
  Receipt Date: 20100907
  Transmission Date: 20110219
  Serious: Yes (Hospitalization)
  Sender: FDA-Public Use
  Company Number: TN-RANBAXY-2010RR-38179

PATIENT
  Age: 7 Month
  Sex: Male

DRUGS (1)
  1. IBUPROFEN [Suspect]
     Dosage: 7.5 MG/KG, UNK

REACTIONS (1)
  - METHAEMOGLOBINAEMIA [None]
